FAERS Safety Report 5010648-1 (Version None)
Quarter: 2006Q2

REPORT INFORMATION
  Report Type: 
  Country: None (occurrence: None)
  Receive Date: 20060525
  Receipt Date: 20060518
  Transmission Date: 20061013
  Serious: Yes (Hospitalization, Other)
  Sender: FDA-Public Use
  Company Number: SE-JNJFOC-20060504251

PATIENT
  Sex: Female
  Weight: 61 kg

DRUGS (2)
  1. GALANTAMINE HYDROBROMIDE [Suspect]
     Route: 048
  2. PLACEBO [Suspect]
     Route: 048

REACTIONS (2)
  - DYSPNOEA [None]
  - URTICARIA [None]
